FAERS Safety Report 21630835 (Version 2)
Quarter: 2022Q4

REPORT INFORMATION
  Report Type: Spontaneous
  Country: FR (occurrence: FR)
  Receive Date: 20221123
  Receipt Date: 20221227
  Transmission Date: 20230113
  Serious: Yes (Hospitalization)
  Sender: FDA-Public Use
  Company Number: FR-AstraZeneca-2022A382687

PATIENT
  Age: 0 Year
  Sex: Male
  Weight: 5 kg

DRUGS (2)
  1. SYNAGIS [Suspect]
     Active Substance: PALIVIZUMAB
     Indication: Bronchiolitis
     Dosage: AT UNSPECIFIED DOSAGE, AT THE VOLUME OF 0.60 ML
     Dates: start: 20221028, end: 20221028
  2. SYNAGIS [Suspect]
     Active Substance: PALIVIZUMAB
     Dosage: AT THE VOLUME OF 0.72 ML
     Dates: start: 20221113, end: 20221113

REACTIONS (9)
  - Muscle spasms [Recovered/Resolved]
  - Dyspnoea [Recovered/Resolved]
  - Hyperhidrosis [Recovered/Resolved]
  - Apnoea [Recovered/Resolved]
  - Cyanosis [Recovered/Resolved]
  - Hypertonia neonatal [Recovered/Resolved]
  - Hypotonia neonatal [Recovered/Resolved]
  - Regurgitation [Recovered/Resolved]
  - Urticaria [Recovered/Resolved]

NARRATIVE: CASE EVENT DATE: 20221028
